FAERS Safety Report 12764035 (Version 3)
Quarter: 2016Q4

REPORT INFORMATION
  Report Type: Spontaneous
  Country: CN (occurrence: CN)
  Receive Date: 20160920
  Receipt Date: 20161018
  Transmission Date: 20170207
  Serious: Yes (Hospitalization)
  Sender: FDA-Public Use
  Company Number: CN-ASTRAZENECA-2016SE98064

PATIENT
  Age: 70 Year
  Sex: Female

DRUGS (4)
  1. XINKANG [Concomitant]
     Active Substance: ISOSORBIDE MONONITRATE
     Dates: start: 20160911
  2. ASPIRIN. [Concomitant]
     Active Substance: ASPIRIN
     Dates: start: 20160911
  3. BETALOC ZOK [Suspect]
     Active Substance: METOPROLOL SUCCINATE
     Indication: HYPERTENSION
     Route: 048
     Dates: start: 20160911, end: 20160914
  4. PERINDOPRIL TERT-BUTYLAMINE [Concomitant]
     Active Substance: PERINDOPRIL ERBUMINE
     Dates: start: 20160911

REACTIONS (5)
  - Insomnia [Recovered/Resolved]
  - Overweight [Unknown]
  - Cholelithiasis [Unknown]
  - Cerebral infarction [Unknown]
  - Dizziness [Recovered/Resolved]

NARRATIVE: CASE EVENT DATE: 201609
